FAERS Safety Report 10224389 (Version 1)
Quarter: 2014Q1

REPORT INFORMATION
  Report Type: Spontaneous
  Country: US (occurrence: None)
  Receive Date: 20140306
  Receipt Date: 20140306
  Transmission Date: 20141002
  Serious: Yes (Other)
  Sender: FDA-Public Use
  Company Number: 163-21880-13093183

PATIENT
  Age: 70 Year
  Sex: Male

DRUGS (10)
  1. REVLIMID [Suspect]
     Indication: PLASMA CELL MYELOMA
     Dosage: 25 MG, 14 IN 21 D, PO
     Route: 048
     Dates: start: 201305
  2. VELCADE (BORTEZOMIB) [Concomitant]
  3. VITAMIN B12 (CYANOCOBALAMIN) [Concomitant]
  4. OXYCODONE HCL (OXYCODONE HYDROCHLORIDE) [Concomitant]
  5. METFORMIN HCL (OXYCODONE HYDROCHLORIDE) [Concomitant]
  6. OMEPRAZOLE (OMEPRAZOLE) [Concomitant]
  7. ST. JOSEPH ASPIRIN (ACETYLSALICYLIC ACID) [Concomitant]
  8. LOSARTAN POTASSIUM (LOSARTAN POTASSIUM) [Concomitant]
  9. CALTRATE 600 +D (CALCITE D) [Concomitant]
  10. DEXAMETHASONE (DEXAMETHASONE) [Concomitant]

REACTIONS (1)
  - Hypersensitivity [None]
